FAERS Safety Report 7095963-2 (Version None)
Quarter: 2010Q4

REPORT INFORMATION
  Report Type: 
  Country: None (occurrence: None)
  Receive Date: 20101109
  Receipt Date: 20101109
  Transmission Date: 20110411
  Serious: Yes (Life-Threatening, Hospitalization)
  Sender: FDA-Public Use
  Company Number: None

PATIENT
  Age: 58 Year
  Sex: Male
  Weight: 89.3586 kg

DRUGS (1)
  1. DAPSONE [Suspect]
     Indication: DRUG HYPERSENSITIVITY
     Dosage: 100MG DAILY PO
     Route: 048
     Dates: start: 20100916, end: 20101014

REACTIONS (6)
  - CHILLS [None]
  - DYSURIA [None]
  - ODYNOPHAGIA [None]
  - PYREXIA [None]
  - STEVENS-JOHNSON SYNDROME [None]
  - TOXIC EPIDERMAL NECROLYSIS [None]
